FAERS Safety Report 10888607 (Version 2)
Quarter: 2015Q3

REPORT INFORMATION
  Report Type: Spontaneous
  Country: US (occurrence: US)
  Receive Date: 20150305
  Receipt Date: 20150701
  Transmission Date: 20151125
  Serious: Yes (Hospitalization, Other)
  Sender: FDA-Public Use
  Company Number: US-GLAXOSMITHKLINE-US2015028298

PATIENT
  Sex: Male

DRUGS (5)
  1. EPZICOM [Suspect]
     Active Substance: ABACAVIR SULFATE\LAMIVUDINE
     Indication: PRODUCT USED FOR UNKNOWN INDICATION
     Dosage: 300 MG, 1D
     Dates: start: 1998
  2. TACROLIMUS. [Concomitant]
     Active Substance: TACROLIMUS
  3. CELLCEPT [Concomitant]
     Active Substance: MYCOPHENOLATE MOFETIL\MYCOPHENOLATE MOFETIL HYDROCHLORIDE
  4. NORVIR [Concomitant]
     Active Substance: RITONAVIR
  5. PREZISTA [Concomitant]
     Active Substance: DARUNAVIR ETHANOLATE

REACTIONS (13)
  - Chemotherapy [Recovered/Resolved]
  - Skin cancer [Recovered/Resolved]
  - Hypersensitivity [Recovered/Resolved]
  - Radiotherapy [Recovered/Resolved]
  - Cancer surgery [Recovered/Resolved]
  - Malaise [Unknown]
  - Colorectal cancer [Recovered/Resolved]
  - Renal transplant [Recovered/Resolved]
  - Diarrhoea [Not Recovered/Not Resolved]
  - Rash [Recovered/Resolved]
  - Renal failure [Recovered/Resolved]
  - Abdominal pain [Not Recovered/Not Resolved]
  - Rash pruritic [Recovered/Resolved]

NARRATIVE: CASE EVENT DATE: 2000
